FAERS Safety Report 16658258 (Version 1)
Quarter: 2019Q3

REPORT INFORMATION
  Report Type: Spontaneous
  Country: US (occurrence: US)
  Receive Date: 20190801
  Receipt Date: 20190801
  Transmission Date: 20191004
  Serious: Yes (Other)
  Sender: FDA-Public Use
  Company Number: US-PRINSTON PHARMACEUTICAL INC.-2019PRN00720

PATIENT
  Sex: Female

DRUGS (2)
  1. ESCITALOPRAM [Suspect]
     Active Substance: ESCITALOPRAM OXALATE
     Dosage: UNK
     Dates: start: 2009
  2. APRISO [Concomitant]
     Active Substance: MESALAMINE

REACTIONS (6)
  - Crohn^s disease [Not Recovered/Not Resolved]
  - Renal cancer [Unknown]
  - Depressed mood [Not Recovered/Not Resolved]
  - Malaise [Recovered/Resolved]
  - Coeliac disease [Not Recovered/Not Resolved]
  - Colectomy [Recovered/Resolved]

NARRATIVE: CASE EVENT DATE: 2009
